FAERS Safety Report 13372874 (Version 1)
Quarter: 2017Q1

REPORT INFORMATION
  Report Type: Spontaneous
  Country: US (occurrence: US)
  Receive Date: 20170326
  Receipt Date: 20170326
  Transmission Date: 20170429
  Serious: Yes (Other)
  Sender: FDA-Public Use
  Company Number: None

PATIENT
  Age: 49 Year
  Sex: Female
  Weight: 90 kg

DRUGS (16)
  1. MONTEKULAST SODIUM 10 MG [Suspect]
     Active Substance: MONTELUKAST SODIUM
     Indication: MULTIPLE ALLERGIES
     Route: 048
  2. SINGULAIR [Concomitant]
     Active Substance: MONTELUKAST SODIUM
  3. VITAMIN D [Concomitant]
     Active Substance: CHOLECALCIFEROL
  4. MELATONIN [Concomitant]
     Active Substance: MELATONIN
  5. TYLENOL [Concomitant]
     Active Substance: ACETAMINOPHEN
  6. MOTRIN [Concomitant]
     Active Substance: IBUPROFEN
  7. FISH OIL [Concomitant]
     Active Substance: FISH OIL
  8. ATORVASTATIN [Concomitant]
     Active Substance: ATORVASTATIN
  9. MELOXICAM. [Concomitant]
     Active Substance: MELOXICAM
  10. CALCIUM [Concomitant]
     Active Substance: CALCIUM
  11. MONTEKULAST SODIUM 10 MG [Suspect]
     Active Substance: MONTELUKAST SODIUM
     Indication: ASTHMA
     Route: 048
  12. ZOLOFT [Concomitant]
     Active Substance: SERTRALINE HYDROCHLORIDE
  13. ZOFRAN [Concomitant]
     Active Substance: ONDANSETRON HYDROCHLORIDE
  14. COQ TEN [Concomitant]
  15. ALLEGRA [Concomitant]
     Active Substance: FEXOFENADINE HYDROCHLORIDE
  16. VITAMIN B12 [Concomitant]
     Active Substance: CYANOCOBALAMIN

REACTIONS (6)
  - Anxiety [None]
  - Quality of life decreased [None]
  - Pruritus [None]
  - Depression [None]
  - Aggression [None]
  - Drug effect decreased [None]

NARRATIVE: CASE EVENT DATE: 20080303
